FAERS Safety Report 8156429-1 (Version None)
Quarter: 2012Q1

REPORT INFORMATION
  Report Type: 
  Country: None (occurrence: None)
  Receive Date: 20120216
  Receipt Date: 20120204
  Transmission Date: 20120608
  Serious: Yes (Hospitalization)
  Sender: FDA-Public Use
  Company Number: 2012AP000313

PATIENT
  Age: 42 Year
  Sex: Male

DRUGS (3)
  1. MYCOPHENOLATE MOFETIL [Suspect]
     Indication: CHORIORETINOPATHY
     Dosage: 1 G; BID, 1.5 G; BID, 500 MG; BID; PO
     Route: 048
     Dates: start: 20040801
  2. MYCOPHENOLATE MOFETIL [Suspect]
     Indication: CHORIORETINOPATHY
     Dosage: 1 G; BID, 1.5 G; BID, 500 MG; BID; PO
     Route: 048
     Dates: start: 20040101
  3. PREDNISONE TAB [Concomitant]

REACTIONS (4)
  - CYTOMEGALOVIRUS VIRAEMIA [None]
  - CYTOMEGALOVIRUS COLITIS [None]
  - ORAL CANDIDIASIS [None]
  - ABDOMINAL TENDERNESS [None]
